FAERS Safety Report 6136058-1 (Version None)
Quarter: 2009Q1

REPORT INFORMATION
  Report Type: 
  Country: None (occurrence: None)
  Receive Date: 20090330
  Receipt Date: 20090327
  Transmission Date: 20090719
  Serious: Yes (Hospitalization)
  Sender: FDA-Public Use
  Company Number: TW-JNJFOC-20090306720

PATIENT
  Age: 57 Year
  Sex: Male
  Weight: 65 kg

DRUGS (3)
  1. TOPIRAMATE [Suspect]
     Route: 048
  2. TOPIRAMATE [Suspect]
     Indication: CONVULSION
     Route: 048
  3. OXCARBAZEPINE [Concomitant]

REACTIONS (7)
  - APHASIA [None]
  - CONVULSION [None]
  - DEPRESSION [None]
  - DYSARTHRIA [None]
  - HEMIANOPIA [None]
  - MEMORY IMPAIRMENT [None]
  - VISION BLURRED [None]
